FAERS Safety Report 8463052-8 (Version None)
Quarter: 2012Q2

REPORT INFORMATION
  Report Type: 
  Country: None (occurrence: None)
  Receive Date: 20120625
  Receipt Date: 20100319
  Transmission Date: 20120825
  Serious: Yes (Other)
  Sender: FDA-Public Use
  Company Number: US-ROCHE-693842

PATIENT
  Sex: Female

DRUGS (1)
  1. BONIVA [Suspect]
     Indication: OSTEOPOROSIS
     Dosage: HAS BEEN TAKING BONIVA FOR 2-3 YEARS, POSSIBLY LONGER
     Route: 048

REACTIONS (3)
  - FALL [None]
  - MULTIPLE FRACTURES [None]
  - ARTHRALGIA [None]
